FAERS Safety Report 19954890 (Version 1)
Quarter: 2021Q4

REPORT INFORMATION
  Report Type: Spontaneous
  Country: US (occurrence: US)
  Receive Date: 20211014
  Receipt Date: 20211014
  Transmission Date: 20220303
  Serious: No
  Sender: FDA-Public Use
  Company Number: US-LUPIN PHARMACEUTICALS INC.-2021-19214

PATIENT
  Age: 53 Year
  Sex: Female

DRUGS (2)
  1. TRIAMCINOLONE [Suspect]
     Active Substance: TRIAMCINOLONE
     Indication: Epicondylitis
     Dosage: 40 MILLIGRAM (1ML) INJECTED INTO THE AREA OF THE FLEXOR TENDON ORIGIN
     Route: 042
  2. LIDOCAINE [Concomitant]
     Active Substance: LIDOCAINE
     Indication: Epicondylitis
     Dosage: UNK (1ML INJECTED INTO THE AREA OF THE FLEXOR TENDON ORIGIN)
     Route: 065

REACTIONS (2)
  - Injection site atrophy [Recovered/Resolved]
  - Skin depigmentation [Recovered/Resolved]
